FAERS Safety Report 7072874-X (Version None)
Quarter: 2010Q4

REPORT INFORMATION
  Report Type: 
  Country: None (occurrence: None)
  Receive Date: 20101029
  Receipt Date: 20100323
  Transmission Date: 20110411
  Serious: No
  Sender: FDA-Public Use
  Company Number: A0851625A

PATIENT
  Age: 82 Year
  Sex: Male

DRUGS (7)
  1. ADVAIR DISKUS 100/50 [Suspect]
     Indication: CHRONIC OBSTRUCTIVE PULMONARY DISEASE
     Dosage: 1PUFF TWICE PER DAY
     Route: 055
     Dates: start: 20040101
  2. SPIRIVA [Concomitant]
  3. UROXATRAL [Concomitant]
  4. FINASTERIDE [Concomitant]
  5. BUMEX [Concomitant]
  6. POTASSIUM CHLORIDE [Concomitant]
  7. DILTIAZEM [Concomitant]

REACTIONS (1)
  - ORAL DISORDER [None]
